FAERS Safety Report 16678878 (Version 1)
Quarter: 2019Q3

REPORT INFORMATION
  Report Type: Spontaneous
  Country: US (occurrence: US)
  Receive Date: 20190623
  Receipt Date: 20190623
  Transmission Date: 20191004
  Serious: No
  Sender: FDA-Public Use
  Company Number: None

PATIENT
  Sex: Female

DRUGS (1)
  1. IBRANCE [Suspect]
     Active Substance: PALBOCICLIB
     Indication: BREAST CANCER
     Dosage: ?          OTHER FREQUENCY: DAILY FOR 21 DAYS?
     Route: 048
     Dates: start: 20190221

REACTIONS (5)
  - Burning sensation [None]
  - Sensory loss [None]
  - Nausea [None]
  - Alopecia [None]
  - Fatigue [None]
